FAERS Safety Report 7487750-8 (Version None)
Quarter: 2011Q2

REPORT INFORMATION
  Report Type: 
  Country: None (occurrence: None)
  Receive Date: 20110518
  Receipt Date: 20110513
  Transmission Date: 20111010
  Serious: Yes (Hospitalization, Other)
  Sender: FDA-Public Use
  Company Number: PHBS2008CZ06046

PATIENT
  Age: 43 Year
  Sex: Female

DRUGS (3)
  1. INTERFERON BETA-1B [Suspect]
     Indication: MULTIPLE SCLEROSIS RELAPSE
     Dosage: 8 MIU, EVERY OTHER DAY
     Route: 058
     Dates: start: 19980101
  2. INTERFERON BETA-1B [Suspect]
     Dosage: UNK UKN, UNK
     Dates: start: 20060601, end: 20061001
  3. INTERFERON BETA-1B [Suspect]
     Dosage: UNK UKN, UNK
     Dates: start: 20070101

REACTIONS (17)
  - HAEMATURIA [None]
  - INFLUENZA LIKE ILLNESS [None]
  - HAEMATOMA [None]
  - SYSTEMIC LUPUS ERYTHEMATOSUS [None]
  - TUBULOINTERSTITIAL NEPHRITIS [None]
  - GLYCOSURIA [None]
  - HYPERTENSION [None]
  - XEROPHTHALMIA [None]
  - MULTIPLE SCLEROSIS [None]
  - NERVOUS SYSTEM DISORDER [None]
  - RENAL FAILURE [None]
  - RED BLOOD CELL SEDIMENTATION RATE INCREASED [None]
  - PROTEINURIA [None]
  - PYRAMIDAL TRACT SYNDROME [None]
  - SKIN REACTION [None]
  - ANTINUCLEAR ANTIBODY POSITIVE [None]
  - SJOGREN'S SYNDROME [None]
